FAERS Safety Report 8696856 (Version 2)
Quarter: 2013Q4

REPORT INFORMATION
  Report Type: Spontaneous
  Country: FR (occurrence: FR)
  Receive Date: 20120801
  Receipt Date: 20131106
  Transmission Date: 20140711
  Serious: Yes (Disabling)
  Sender: FDA-Public Use
  Company Number: FR-009507513-1207FRA007269

PATIENT
  Age: 52 Year
  Sex: Male

DRUGS (3)
  1. VICTRELIS [Suspect]
     Indication: HEPATITIS C
     Dosage: 800 MG, TID
     Route: 048
     Dates: start: 20120129, end: 20120314
  2. PEGASYS [Suspect]
     Indication: HEPATITIS C
     Dosage: 130 MICROGRAM, UNK
     Route: 058
     Dates: start: 20120101, end: 20120314
  3. COPEGUS [Suspect]
     Indication: HEPATITIS C
     Dosage: 1000 MG, UNK
     Route: 048
     Dates: start: 20120101, end: 20120314

REACTIONS (1)
  - Polyneuropathy [Recovered/Resolved]
